FAERS Safety Report 19683157 (Version 2)
Quarter: 2021Q3

REPORT INFORMATION
  Report Type: Other
  Country: PL (occurrence: PL)
  Receive Date: 20210811
  Receipt Date: 20210901
  Transmission Date: 20211014
  Serious: Yes (Other)
  Sender: FDA-Public Use
  Company Number: PL-CELLTRION INC.-2021PL010495

PATIENT

DRUGS (12)
  1. DOCETAXEL. [Concomitant]
     Active Substance: DOCETAXEL
  2. TRASTUZUMAB. [Suspect]
     Active Substance: TRASTUZUMAB
     Indication: PRODUCT USED FOR UNKNOWN INDICATION
     Dosage: 6 MG/KG, EVERY 3 WEEKS
     Route: 042
  3. ANASTROZOLE. [Concomitant]
     Active Substance: ANASTROZOLE
  4. PERTUZUMAB. [Suspect]
     Active Substance: PERTUZUMAB
     Indication: PRODUCT USED FOR UNKNOWN INDICATION
     Dosage: 420 MG, EVERY 3 WEEKS
     Route: 042
  5. ZOLEDRONIC ACID [Concomitant]
     Active Substance: ZOLEDRONIC ACID
  6. DOXORUBICIN [Concomitant]
     Active Substance: DOXORUBICIN
  7. PALONOSETRON. [Concomitant]
     Active Substance: PALONOSETRON HYDROCHLORIDE
  8. OLANZAPINE. [Concomitant]
     Active Substance: OLANZAPINE
  9. CYCLOPHOSPHAMIDE. [Concomitant]
     Active Substance: CYCLOPHOSPHAMIDE
  10. DEXAMETHASONE. [Concomitant]
     Active Substance: DEXAMETHASONE
  11. NETUPITANT [Concomitant]
     Active Substance: NETUPITANT
  12. INTERFERON ALFA 2A [Concomitant]
     Active Substance: INTERFERON ALFA-2A

REACTIONS (6)
  - Nausea [Unknown]
  - Vomiting [Unknown]
  - Alopecia [Unknown]
  - Fatigue [Unknown]
  - Anxiety [Unknown]
  - Neuropathy peripheral [Unknown]
